FAERS Safety Report 23485128 (Version 1)
Quarter: 2024Q1

REPORT INFORMATION
  Report Type: Spontaneous
  Country: ES (occurrence: ES)
  Receive Date: 20240206
  Receipt Date: 20240206
  Transmission Date: 20240409
  Serious: Yes (Other)
  Sender: FDA-Public Use
  Company Number: None

PATIENT
  Age: 66 Year
  Sex: Male
  Weight: 62.2 kg

DRUGS (2)
  1. OXALIPLATIN [Suspect]
     Active Substance: OXALIPLATIN
     Indication: Pancreatic carcinoma
     Dosage: 120 MG EVERY 14 DAYS (QOW) ACCORDING TO QT CYCLE
     Route: 042
     Dates: start: 20230906
  2. FLUOROURACIL [Suspect]
     Active Substance: FLUOROURACIL
     Indication: Pancreatic carcinoma
     Dosage: 640 MG (BOLUS) + 3400 MG (IC 46 H) EVERY 14 DAYS (QOW)ACCORDING TO QT CYCLE
     Route: 042
     Dates: start: 20230906

REACTIONS (15)
  - Myalgia [Unknown]
  - Sleep disorder [Unknown]
  - Constipation [Unknown]
  - Fatigue [Unknown]
  - Decreased appetite [Unknown]
  - Dry mouth [Unknown]
  - Tremor [Unknown]
  - Palpitations [Unknown]
  - Muscular weakness [Unknown]
  - Abdominal pain upper [Unknown]
  - Dyspepsia [Unknown]
  - Dizziness [Unknown]
  - Peripheral coldness [Unknown]
  - Muscle fatigue [Unknown]
  - Asthenia [Unknown]

NARRATIVE: CASE EVENT DATE: 20230906
